FAERS Safety Report 10492308 (Version 1)
Quarter: 2014Q4

REPORT INFORMATION
  Report Type: Spontaneous
  Country: US (occurrence: US)
  Receive Date: 20141002
  Receipt Date: 20141002
  Transmission Date: 20150528
  Serious: No
  Sender: FDA-Public Use
  Company Number: US-GLAXOSMITHKLINE-A1069077A

PATIENT
  Sex: Female

DRUGS (5)
  1. UNKNOWN DRUG FOR ANXIETY [Concomitant]
     Active Substance: UNSPECIFIED INGREDIENT
  2. ADVAIR HFA [Suspect]
     Active Substance: FLUTICASONE PROPIONATE\SALMETEROL XINAFOATE
     Indication: ASTHMA
     Dates: start: 2012, end: 2013
  3. FLOVENT [Suspect]
     Active Substance: FLUTICASONE PROPIONATE
     Indication: ASTHMA
     Dates: start: 2013
  4. PROAIR HFA [Concomitant]
     Active Substance: ALBUTEROL SULFATE
  5. CENTRUM [Concomitant]
     Active Substance: VITAMINS

REACTIONS (4)
  - Blood pressure increased [Unknown]
  - Dental caries [Unknown]
  - Chest discomfort [Unknown]
  - Painful respiration [Unknown]

NARRATIVE: CASE EVENT DATE: 2013
